FAERS Safety Report 10244134 (Version 1)
Quarter: 2014Q2

REPORT INFORMATION
  Report Type: Spontaneous
  Country: US (occurrence: US)
  Receive Date: 20140618
  Receipt Date: 20140618
  Transmission Date: 20141212
  Serious: No
  Sender: FDA-Public Use
  Company Number: US-B.I. PHARMACEUTICALS,INC./RIDGEFIELD-2014-BI-26014BP

PATIENT
  Age: 69 Year
  Sex: Female
  Weight: 40 kg

DRUGS (4)
  1. SPIRIVA [Suspect]
     Indication: EMPHYSEMA
     Dosage: 18 MCG
     Route: 055
     Dates: start: 2010
  2. SYMBICORT [Concomitant]
     Indication: EMPHYSEMA
     Dosage: FORM:INHALATION AEROSOL, DAILY DOSE: 2 PUFFS
     Route: 055
     Dates: start: 2011
  3. COMBIVENT [Concomitant]
     Indication: EMPHYSEMA
     Dosage: FORM:INHALATION AEROSOL, STRENGTH: 20 MCG/ 100 MCG ALBUTEROL; DAILY DOSE: 80 MCG/ 400 MCG
     Route: 055
     Dates: start: 201312
  4. RESPIRONIC [Concomitant]
     Dosage: FORMULATION: INHALATION AEROSOL
     Route: 055

REACTIONS (6)
  - Nasopharyngitis [Not Recovered/Not Resolved]
  - Oropharyngeal pain [Not Recovered/Not Resolved]
  - Dyspnoea [Not Recovered/Not Resolved]
  - Oxygen saturation decreased [Not Recovered/Not Resolved]
  - Product quality issue [Unknown]
  - Product quality issue [Unknown]
